FAERS Safety Report 24751188 (Version 2)
Quarter: 2024Q4

REPORT INFORMATION
  Report Type: Spontaneous
  Country: JP (occurrence: JP)
  Receive Date: 20241219
  Receipt Date: 20241231
  Transmission Date: 20250115
  Serious: Yes (Hospitalization, Other)
  Sender: GENMAB
  Company Number: JP-GENMAB-2023-02490AA

PATIENT
  Age: 7 Decade
  Sex: Female
  Weight: 52.3 kg

DRUGS (8)
  1. EPKINLY [Suspect]
     Active Substance: EPCORITAMAB-BYSP
     Indication: Diffuse large B-cell lymphoma refractory
     Dosage: 0.16 MILLIGRAM, SINGLE, C1D1
     Route: 058
     Dates: start: 20231130, end: 20231130
  2. EPKINLY [Suspect]
     Active Substance: EPCORITAMAB-BYSP
     Dosage: 0.16 MILLIGRAM, SINGLE, C1D11, REPRIMING
     Route: 058
     Dates: start: 20231210, end: 20231210
  3. EPKINLY [Suspect]
     Active Substance: EPCORITAMAB-BYSP
     Dosage: 0.8 MILLIGRAM, SINGLE
     Route: 058
     Dates: start: 20231217, end: 20231217
  4. EPKINLY [Suspect]
     Active Substance: EPCORITAMAB-BYSP
     Dosage: 48 MILLIGRAM
     Route: 058
     Dates: start: 20231224
  5. CYCLOPHOSPHAMIDE [Concomitant]
     Active Substance: CYCLOPHOSPHAMIDE
     Indication: Diffuse large B-cell lymphoma refractory
     Dosage: UNK, ONE COURSE OF COP THERAPY WAS PERFORMED TO DECREASED TUMOR VOLUME
     Dates: start: 202311, end: 202311
  6. VINCRISTINE SULFATE [Concomitant]
     Active Substance: VINCRISTINE SULFATE
     Indication: Diffuse large B-cell lymphoma refractory
     Dosage: UNK, ONE COURSE OF COP THERAPY WAS PERFORMED TO DECREASED TUMOR VOLUME
     Dates: start: 202311, end: 202311
  7. PREDNISOLONE [Concomitant]
     Active Substance: PREDNISOLONE
     Indication: Diffuse large B-cell lymphoma refractory
     Dosage: UNK, ONE COURSE OF COP THERAPY WAS PERFORMED TO DECREASED TUMOR VOLUME
     Dates: start: 202311, end: 202311
  8. PREDNISOLONE [Concomitant]
     Active Substance: PREDNISOLONE
     Indication: Premedication
     Dosage: 100 MILLIGRAM, FROM CYCLE1DAY1 OF ADMINISTRATION OF EPKINLY
     Dates: start: 20231130

REACTIONS (4)
  - Cardiac failure [Unknown]
  - Cytokine release syndrome [Recovered/Resolved]
  - Cytokine release syndrome [Unknown]
  - Cytokine release syndrome [Unknown]

NARRATIVE: CASE EVENT DATE: 20231205
